FAERS Safety Report 6285186-9 (Version None)
Quarter: 2009Q3

REPORT INFORMATION
  Report Type: 
  Country: None (occurrence: None)
  Receive Date: 20090727
  Receipt Date: 20090718
  Transmission Date: 20100115
  Serious: Yes (Other)
  Sender: FDA-Public Use
  Company Number: PHHY2009CA30240

PATIENT

DRUGS (1)
  1. ALISKIREN ALI+ [Suspect]

REACTIONS (2)
  - HEADACHE [None]
  - PRIAPISM [None]
